FAERS Safety Report 5766727-4 (Version None)
Quarter: 2008Q2

REPORT INFORMATION
  Report Type: 
  Country: None (occurrence: None)
  Receive Date: 20080612
  Receipt Date: 20080603
  Transmission Date: 20081010
  Serious: Yes (Other)
  Sender: FDA-Public Use
  Company Number: ES-BAYER-200819563GPV

PATIENT
  Sex: Female

DRUGS (1)
  1. ASPIRIN [Suspect]
     Indication: INFLUENZA
     Route: 065

REACTIONS (2)
  - FOETAL DISORDER [None]
  - NO ADVERSE EVENT [None]
